FAERS Safety Report 21359553 (Version 1)
Quarter: 2022Q3

REPORT INFORMATION
  Report Type: Spontaneous
  Country: US (occurrence: None)
  Receive Date: 20220920
  Receipt Date: 20220920
  Transmission Date: 20221027
  Serious: Yes (Hospitalization, Disabling, Other)
  Sender: FDA-Public Use
  Company Number: None

PATIENT
  Age: 30 Year
  Weight: 66.68 kg

DRUGS (3)
  1. OXYCODONE [Suspect]
     Active Substance: OXYCODONE
     Indication: Product used for unknown indication
  2. XANAX [Concomitant]
     Active Substance: ALPRAZOLAM
  3. Zolpidem ER Winthrop brand [Concomitant]

REACTIONS (4)
  - Pain [None]
  - Extra dose administered [None]
  - Product prescribing issue [None]
  - Drug tolerance decreased [None]

NARRATIVE: CASE EVENT DATE: 20220201
